FAERS Safety Report 8789401 (Version 1)
Quarter: 2012Q4

REPORT INFORMATION
  Report Type: Spontaneous
  Country: US (occurrence: None)
  Receive Date: 20120904
  Receipt Date: 20120904
  Transmission Date: 20130627
  Serious: Yes (Death, Other)
  Sender: FDA-Public Use
  Company Number: ADE12-074

PATIENT
  Age: 83 Year
  Sex: Female
  Weight: 54.4 kg

DRUGS (6)
  1. HEPARIN SODIUM [Suspect]
     Route: 042
     Dates: start: 20120716, end: 20120716
  2. PLAVIX [Concomitant]
  3. ASPIRIN [Concomitant]
  4. LISINOPRIL [Concomitant]
  5. HYDROCHLOROTHIAZIDE [Concomitant]
  6. PRAVASTATIN [Concomitant]

REACTIONS (2)
  - Haemorrhage intracranial [None]
  - Procedural complication [None]
